FAERS Safety Report 7564311-3 (Version None)
Quarter: 2011Q2

REPORT INFORMATION
  Report Type: 
  Country: None (occurrence: None)
  Receive Date: 20110622
  Receipt Date: 20110531
  Transmission Date: 20111010
  Serious: No
  Sender: FDA-Public Use
  Company Number: US-ALLERGAN-1107464US

PATIENT
  Age: 64 Year
  Sex: Female

DRUGS (2)
  1. TIMOLOL MALEATE [Concomitant]
  2. LUMIGAN [Suspect]
     Indication: GLAUCOMA
     Dosage: 1 GTT, QHS
     Route: 047
     Dates: start: 20110101

REACTIONS (1)
  - OCULAR HYPERAEMIA [None]
